FAERS Safety Report 8812750 (Version 1)
Quarter: 2012Q4

REPORT INFORMATION
  Report Type: 
  Country: CA (occurrence: CA)
  Receive Date: 20120927
  Receipt Date: 20120927
  Transmission Date: 20130627
  Serious: Yes (Hospitalization)
  Sender: FDA-Public Use
  Company Number: CA-ELI_LILLY_AND_COMPANY-CA201209005005

PATIENT
  Age: 80 Year
  Sex: Female

DRUGS (12)
  1. FORTEO [Suspect]
     Indication: OSTEOPOROSIS
     Dosage: 20 ug, qd
     Route: 058
     Dates: start: 20120509, end: 20120912
  2. METOPROLOL [Concomitant]
  3. DILTIAZEM [Concomitant]
  4. TOLOXIN                            /00017701/ [Concomitant]
  5. FERROUS SULFATE [Concomitant]
  6. NOVO-GESIC [Concomitant]
  7. PANTOPRAZOLE [Concomitant]
  8. CALCIUM [Concomitant]
  9. LYRICA [Concomitant]
  10. SERTRALINE [Concomitant]
  11. K-DUR [Concomitant]
  12. ATIVAN [Concomitant]

REACTIONS (1)
  - Fatigue [Not Recovered/Not Resolved]
